FAERS Safety Report 8595722-5 (Version None)
Quarter: 2012Q3

REPORT INFORMATION
  Report Type: 
  Country: None (occurrence: None)
  Receive Date: 20120815
  Receipt Date: 20120808
  Transmission Date: 20120928
  Serious: Yes (Hospitalization, Other)
  Sender: FDA-Public Use
  Company Number: PHHY2012BR068587

PATIENT
  Age: 28 Year
  Sex: Male

DRUGS (9)
  1. GANCICLOVIR [Suspect]
     Dosage: 5 MG/KG
     Route: 042
  2. GANCICLOVIR [Suspect]
     Dosage: 5 MG/KG, ON ALTERNATE DAYS
     Route: 042
  3. GANCICLOVIR [Suspect]
     Dosage: 1000 MG, BID
     Route: 048
  4. GANCICLOVIR [Suspect]
     Route: 042
  5. MYCOPHENOLATE MOFETIL [Suspect]
     Indication: IMMUNOSUPPRESSION
     Dosage: 1.5 MG, UNK
  6. GANCICLOVIR [Suspect]
     Indication: CYTOMEGALOVIRUS INFECTION
     Dosage: 5 MG/KG, BID
     Route: 042
  7. GANCICLOVIR [Suspect]
     Dosage: 5 MG/KG, BID
     Route: 042
  8. PREDNISONE TAB [Concomitant]
     Indication: IMMUNOSUPPRESSION
     Dosage: 30 MG, UNK
  9. TACROLIMUS [Concomitant]
     Indication: IMMUNOSUPPRESSION
     Dosage: 8 MG, UNK

REACTIONS (15)
  - PYREXIA [None]
  - ABDOMINAL PAIN [None]
  - ANAEMIA [None]
  - NAUSEA [None]
  - LEUKOPENIA [None]
  - NEUTROPENIA [None]
  - DRUG RESISTANCE [None]
  - THROMBOCYTOPENIA [None]
  - CYTOMEGALOVIRUS INFECTION [None]
  - DIARRHOEA [None]
  - DECREASED APPETITE [None]
  - MYALGIA [None]
  - RHINORRHOEA [None]
  - DYSPEPSIA [None]
  - HEPATIC ENZYME INCREASED [None]
